FAERS Safety Report 6289355-3 (Version None)
Quarter: 2009Q3

REPORT INFORMATION
  Report Type: 
  Country: None (occurrence: None)
  Receive Date: 20090728
  Receipt Date: 20090728
  Transmission Date: 20100115
  Serious: No
  Sender: FDA-Public Use
  Company Number: None

PATIENT
  Age: 70 Year
  Sex: Female
  Weight: 56.6996 kg

DRUGS (2)
  1. CRESTOR [Suspect]
     Indication: LOW DENSITY LIPOPROTEIN DECREASED
     Dates: start: 20090612, end: 20090722
  2. CRESTOR [Suspect]
     Indication: LOW DENSITY LIPOPROTEIN INCREASED
     Dates: start: 20090612, end: 20090722

REACTIONS (4)
  - CONTUSION [None]
  - HOT FLUSH [None]
  - PRURITUS GENERALISED [None]
  - SKIN DISORDER [None]
